FAERS Safety Report 6419801-3 (Version None)
Quarter: 2009Q4

REPORT INFORMATION
  Report Type: 
  Country: None (occurrence: None)
  Receive Date: 20091013
  Receipt Date: 20081217
  Transmission Date: 20100525
  Serious: Yes (Hospitalization)
  Sender: FDA-Public Use
  Company Number: 1000003177

PATIENT
  Age: 48 Year
  Sex: Male

DRUGS (7)
  1. LEXAPRO [Suspect]
     Indication: DEPRESSION
     Dosage: ORAL
     Route: 048
     Dates: end: 20081118
  2. LEXAPRO [Suspect]
     Indication: DEPRESSION
     Dosage: ORAL
     Route: 048
     Dates: start: 20081125
  3. E2080 [Suspect]
     Indication: PARTIAL SEIZURES
     Dosage: 2400 MG (400 MG, 6 IN 1 D), ORAL
     Route: 048
     Dates: start: 20080507
  4. LAMOTRIGINE [Concomitant]
  5. LEVETIRACETAM [Concomitant]
  6. PHENYTOIN [Concomitant]
  7. QUETIAPINE [Concomitant]

REACTIONS (2)
  - ANXIETY [None]
  - CONFUSIONAL STATE [None]
